FAERS Safety Report 11992983 (Version 1)
Quarter: 2016Q1

REPORT INFORMATION
  Report Type: Spontaneous
  Country: US (occurrence: US)
  Receive Date: 20160203
  Receipt Date: 20160203
  Transmission Date: 20160526
  Serious: No
  Sender: FDA-Public Use
  Company Number: US-UCBSA-2015015689

PATIENT

DRUGS (3)
  1. DECADRON [Concomitant]
     Active Substance: DEXAMETHASONE
     Indication: MIGRAINE
  2. KEPPRA [Suspect]
     Active Substance: LEVETIRACETAM
     Indication: MIGRAINE
  3. KEPPRA [Suspect]
     Active Substance: LEVETIRACETAM
     Indication: OFF LABEL USE

REACTIONS (4)
  - Drug ineffective for unapproved indication [Unknown]
  - Thyroid disorder [Unknown]
  - Off label use [Unknown]
  - Vitamin B12 decreased [Unknown]
